FAERS Safety Report 7340644-0 (Version None)
Quarter: 2011Q1

REPORT INFORMATION
  Report Type: 
  Country: None (occurrence: None)
  Receive Date: 20110309
  Receipt Date: 20110228
  Transmission Date: 20110831
  Serious: Yes (Hospitalization, Other)
  Sender: FDA-Public Use
  Company Number: AU-ROCHE-745603

PATIENT
  Sex: Female
  Weight: 76 kg

DRUGS (4)
  1. ACTEMRA [Suspect]
     Indication: RHEUMATOID ARTHRITIS
     Dosage: INFUSION
     Route: 042
     Dates: start: 20100329, end: 20101018
  2. CALTRATE + D [Suspect]
     Indication: OSTEOPOROSIS
     Dosage: DOSE: 600+400 U DAILY
     Route: 048
     Dates: start: 20040901, end: 20101008
  3. PREDNISOLONE [Concomitant]
     Indication: INTERSTITIAL GRANULOMATOUS DERMATITIS
     Route: 048
     Dates: start: 20071009
  4. ACTEMRA [Suspect]
     Dosage: RE-STARTED ON 22 NOV 2010
     Route: 042

REACTIONS (2)
  - HYPERCALCAEMIA [None]
  - LUNG ABSCESS [None]
